FAERS Safety Report 7777876-3 (Version None)
Quarter: 2011Q3

REPORT INFORMATION
  Report Type: 
  Country: None (occurrence: None)
  Receive Date: 20110926
  Receipt Date: 20110916
  Transmission Date: 20111222
  Serious: No
  Sender: FDA-Public Use
  Company Number: US-BIOGENIDEC-2011BI035855

PATIENT
  Age: 53 Year
  Sex: Female

DRUGS (1)
  1. TYSABRI [Suspect]
     Indication: MULTIPLE SCLEROSIS
     Route: 042
     Dates: start: 20110304

REACTIONS (8)
  - FALL [None]
  - PARAESTHESIA [None]
  - MOBILITY DECREASED [None]
  - FEELING ABNORMAL [None]
  - PAIN [None]
  - GASTROINTESTINAL DISORDER [None]
  - ASTHENIA [None]
  - MUSCULAR WEAKNESS [None]
